FAERS Safety Report 10096195 (Version 1)
Quarter: 2014Q2

REPORT INFORMATION
  Report Type: Spontaneous
  Country: IT (occurrence: IT)
  Receive Date: 20140422
  Receipt Date: 20140422
  Transmission Date: 20141212
  Serious: Yes (Other)
  Sender: FDA-Public Use
  Company Number: IT-ABBVIE-14P-083-1228663-00

PATIENT
  Age: 28 Year
  Sex: Female

DRUGS (1)
  1. MACLADIN [Suspect]
     Indication: TONSILLITIS
     Route: 048
     Dates: start: 20140404, end: 20140406

REACTIONS (2)
  - Pharyngeal oedema [Recovering/Resolving]
  - Pharyngeal erythema [Recovering/Resolving]
